FAERS Safety Report 22646832 (Version 1)
Quarter: 2023Q2

REPORT INFORMATION
  Report Type: Other
  Country: US (occurrence: None)
  Receive Date: 20230627
  Receipt Date: 20230627
  Transmission Date: 20230721
  Serious: No
  Sender: FDA-Public Use
  Company Number: US-ROCHE-3204906

PATIENT
  Age: 54 Year
  Sex: Male
  Weight: 89.892 kg

DRUGS (1)
  1. OCREVUS [Suspect]
     Active Substance: OCRELIZUMAB
     Indication: Multiple sclerosis
     Dosage: YES, 300MG EVERY 24 DAYS THEN 600MG, EVERY 6 MONTH?DATE OF TREATMENT: 28/JAN/2020, 26/JUN/2020, 18/J
     Route: 042
     Dates: start: 2017

REACTIONS (4)
  - Insomnia [Recovered/Resolved]
  - Fall [Unknown]
  - Drug ineffective [Unknown]
  - COVID-19 [Unknown]

NARRATIVE: CASE EVENT DATE: 20220301
